FAERS Safety Report 7168189-1 (Version None)
Quarter: 2010Q4

REPORT INFORMATION
  Report Type: 
  Country: None (occurrence: None)
  Receive Date: 20101216
  Receipt Date: 20101213
  Transmission Date: 20110411
  Serious: Yes (Other)
  Sender: FDA-Public Use
  Company Number: US-PFIZER INC-2010153754

PATIENT
  Sex: Male

DRUGS (17)
  1. CHANTIX [Suspect]
     Indication: SMOKING CESSATION THERAPY
     Dosage: MONTH PACK
     Route: 048
     Dates: start: 20100702, end: 20100802
  2. CHANTIX [Suspect]
     Dosage: MONTH PACK 1MG TAB
     Dates: start: 20100803, end: 20100920
  3. AMANTADINE [Concomitant]
     Dosage: 100 MG, 2X/DAY
  4. ACETYLSALICYLIC ACID [Concomitant]
     Dosage: 81 MG, 1X/DAY
  5. CYCLOBENZAPRINE [Concomitant]
     Dosage: 10 MG TID PRN
  6. LACOSAMIDE [Concomitant]
     Dosage: UNK
  7. HYDROXYZINE [Concomitant]
     Indication: SLEEP DISORDER
     Dosage: 25-50 MG, EVERY 4-6 HRS PRN
  8. LISINOPRIL [Concomitant]
     Dosage: 40 MG, 1X/DAY
  9. MULTI-VITAMINS [Concomitant]
     Dosage: 1 TABLET DAILY
  10. OMEPRAZOLE [Concomitant]
     Dosage: 40 MG, 1X/DAY
  11. HALDOL [Concomitant]
     Indication: SCHIZOPHRENIA
     Dosage: 75 MG/MONTHLY
     Route: 030
  12. HALDOL [Concomitant]
     Dosage: 10 MG, 1X/DAY PRN
  13. SIMVASTATIN [Concomitant]
     Dosage: 40 MG, 1X/DAY
  14. ACETAMINOPHEN AND HYDROCODONE BITARTRATE [Concomitant]
     Dosage: 5-500 MG, EVERY 4-6 HRS PRN
  15. CHONDROITIN SUF./GLUCOSAMINE HCL /MSM/VITAMIN C [Concomitant]
     Dosage: 500 MG, 2X/DAY
  16. BENZONATATE [Concomitant]
     Dosage: 100 MG, EVERY 6 HRS PRN
  17. HYDROCHLOROTHIAZIDE [Concomitant]
     Dosage: 12.5 MG, 1X/DAY

REACTIONS (19)
  - ABNORMAL BEHAVIOUR [None]
  - AFFECT LABILITY [None]
  - AGGRESSION [None]
  - DELUSION [None]
  - DISCOMFORT [None]
  - DYSTONIA [None]
  - IDEAS OF REFERENCE [None]
  - IRRITABILITY [None]
  - JUDGEMENT IMPAIRED [None]
  - LOGORRHOEA [None]
  - MENTAL IMPAIRMENT [None]
  - PARANOIA [None]
  - PRESSURE OF SPEECH [None]
  - PSYCHOTIC DISORDER [None]
  - SUSPICIOUSNESS [None]
  - TANGENTIALITY [None]
  - TARDIVE DYSKINESIA [None]
  - TEARFULNESS [None]
  - THINKING ABNORMAL [None]
